FAERS Safety Report 23338086 (Version 1)
Quarter: 2023Q4

REPORT INFORMATION
  Report Type: Spontaneous
  Country: US (occurrence: None)
  Receive Date: 20231223
  Receipt Date: 20231223
  Transmission Date: 20240110
  Serious: No
  Sender: FDA-Public Use
  Company Number: None

PATIENT
  Age: 71 Year
  Sex: Female

DRUGS (1)
  1. OTEZLA [Suspect]
     Active Substance: APREMILAST
     Indication: Psoriatic arthropathy
     Dates: start: 20231219

REACTIONS (5)
  - Blood pressure increased [None]
  - Pruritus [None]
  - Influenza [None]
  - Nasopharyngitis [None]
  - Malaise [None]

NARRATIVE: CASE EVENT DATE: 20231222
